FAERS Safety Report 4602494-5 (Version None)
Quarter: 2005Q1

REPORT INFORMATION
  Report Type: 
  Country: None (occurrence: None)
  Receive Date: 20050307
  Receipt Date: 20050222
  Transmission Date: 20050727
  Serious: Yes (Hospitalization)
  Sender: FDA-Public Use
  Company Number: 2005001941

PATIENT
  Age: 27 Year
  Sex: Female

DRUGS (4)
  1. NEURONTIN [Suspect]
     Indication: EPILEPSY
     Dates: start: 20041117
  2. VALPROATE SODIUM [Suspect]
     Indication: EPILEPSY
     Dates: end: 20040101
  3. LEVETIRACETAM [Suspect]
     Indication: EPILEPSY
  4. ZONISAMIDE (ZONISAMIDE) [Suspect]
     Indication: EPILEPSY
     Dates: end: 20040101

REACTIONS (4)
  - ABORTION THREATENED [None]
  - DRUG EXPOSURE DURING PREGNANCY [None]
  - PREGNANCY [None]
  - VOMITING [None]
